FAERS Safety Report 8434300-5 (Version None)
Quarter: 2012Q2

REPORT INFORMATION
  Report Type: 
  Country: None (occurrence: None)
  Receive Date: 20120613
  Receipt Date: 20120531
  Transmission Date: 20120825
  Serious: Yes (Other)
  Sender: FDA-Public Use
  Company Number: BR-ALLERGAN-1208205US

PATIENT
  Age: 3 Year
  Sex: Male

DRUGS (2)
  1. EPINASTINE HYDROCHLORIDE [Suspect]
     Indication: DERMATITIS ALLERGIC
     Dosage: 2.5 ML, QD
     Route: 048
     Dates: start: 20120528
  2. UNSPECIFIED DRUG [Concomitant]
     Indication: LUNG DISORDER
     Dosage: 2 ML, Q6HR
     Route: 048

REACTIONS (3)
  - FACE OEDEMA [None]
  - OEDEMA PERIPHERAL [None]
  - OFF LABEL USE [None]
